FAERS Safety Report 10439862 (Version 2)
Quarter: 2014Q3

REPORT INFORMATION
  Report Type: Spontaneous
  Country: US (occurrence: US)
  Receive Date: 20140908
  Receipt Date: 20140908
  Transmission Date: 20150326
  Serious: Yes (Other)
  Sender: FDA-Public Use
  Company Number: US-BRISTOL-MYERS SQUIBB COMPANY-20666129

PATIENT
  Age: 53 Year
  Sex: Female

DRUGS (10)
  1. VISTARIL [Concomitant]
     Active Substance: HYDROXYZINE PAMOATE
  2. DURAGESIC [Concomitant]
     Active Substance: FENTANYL
  3. PERCOCET [Concomitant]
     Active Substance: ACETAMINOPHEN\OXYCODONE HYDROCHLORIDE
  4. ABILIFY [Suspect]
     Active Substance: ARIPIPRAZOLE
     Indication: ANXIETY
     Route: 048
     Dates: start: 20130722, end: 20140225
  5. LIBRIUM [Concomitant]
     Active Substance: CHLORDIAZEPOXIDE HYDROCHLORIDE
  6. ABILIFY [Suspect]
     Active Substance: ARIPIPRAZOLE
     Indication: MAJOR DEPRESSION
     Route: 048
     Dates: start: 20130722, end: 20140225
  7. MAXIDEX [Concomitant]
     Active Substance: DEXAMETHASONE
  8. NEURONTIN [Concomitant]
     Active Substance: GABAPENTIN
  9. DILANTIN [Concomitant]
     Active Substance: PHENYTOIN
  10. INDERAL LA [Concomitant]
     Active Substance: PROPRANOLOL HYDROCHLORIDE

REACTIONS (2)
  - Weight increased [Recovering/Resolving]
  - Convulsion [Unknown]

NARRATIVE: CASE EVENT DATE: 20130808
